FAERS Safety Report 5549913-8 (Version None)
Quarter: 2007Q4

REPORT INFORMATION
  Report Type: 
  Country: None (occurrence: None)
  Receive Date: 20071212
  Receipt Date: 20070418
  Transmission Date: 20080405
  Serious: No
  Sender: FDA-Public Use
  Company Number: US-AMGEN-KDL220595

PATIENT
  Sex: Female

DRUGS (1)
  1. ENBREL [Suspect]
     Indication: PSORIASIS
     Route: 058
     Dates: start: 20060602

REACTIONS (8)
  - ERYTHEMA OF EYELID [None]
  - EYELID EXFOLIATION [None]
  - EYELID OEDEMA [None]
  - EYELIDS PRURITUS [None]
  - FIBROMYALGIA [None]
  - LACRIMATION INCREASED [None]
  - NASOPHARYNGITIS [None]
  - TEMPOROMANDIBULAR JOINT SYNDROME [None]
